FAERS Safety Report 6802699-9 (Version None)
Quarter: 2010Q2

REPORT INFORMATION
  Report Type: 
  Country: None (occurrence: None)
  Receive Date: 20100628
  Receipt Date: 20100621
  Transmission Date: 20101027
  Serious: Yes (Death, Hospitalization, Disabling)
  Sender: FDA-Public Use
  Company Number: JP-ASTRAZENECA-2010SE29776

PATIENT
  Age: 83 Year
  Sex: Female

DRUGS (1)
  1. AMIAS [Suspect]
     Route: 065

REACTIONS (3)
  - LUNG NEOPLASM MALIGNANT [None]
  - METASTASIS [None]
  - PELVIC FRACTURE [None]
